FAERS Safety Report 8270428-0 (Version None)
Quarter: 2012Q2

REPORT INFORMATION
  Report Type: 
  Country: None (occurrence: None)
  Receive Date: 20120410
  Receipt Date: 20120404
  Transmission Date: 20120825
  Serious: Yes (Hospitalization)
  Sender: FDA-Public Use
  Company Number: JP-B.I. PHARMACEUTICALS,INC./RIDGEFIELD-2012-BP-04345NB

PATIENT
  Sex: Male
  Weight: 43.9 kg

DRUGS (9)
  1. PRADAXA [Suspect]
     Indication: ATRIAL FIBRILLATION
     Dosage: 220 MG
     Route: 048
     Dates: start: 20110501, end: 20111201
  2. ALLOPURINOL [Concomitant]
     Dosage: 100 MG
     Route: 065
  3. PRADAXA [Suspect]
     Dosage: 300 MG
     Route: 048
     Dates: end: 20111220
  4. BISOPROLOL FUMARATE [Concomitant]
     Dosage: 2.5 MG
     Route: 065
  5. FAMOTIDINE [Concomitant]
     Dosage: 20 MG
     Route: 065
     Dates: start: 20050101
  6. FAMOTIDINE [Concomitant]
     Dosage: 20 MG
     Route: 065
  7. LASIX [Concomitant]
     Dosage: 20 MG
     Route: 065
  8. ASPIRIN [Suspect]
     Dosage: 100 MG
     Route: 048
     Dates: start: 20050101
  9. CRESTOR [Concomitant]
     Dosage: 2.5 MG
     Route: 065
     Dates: start: 20050101

REACTIONS (3)
  - EMBOLIC STROKE [None]
  - PERIPHERAL EMBOLISM [None]
  - DRUG INEFFECTIVE [None]
